FAERS Safety Report 11074974 (Version 1)
Quarter: 2015Q2

REPORT INFORMATION
  Report Type: Spontaneous
  Country: GB (occurrence: GB)
  Receive Date: 20150429
  Receipt Date: 20150429
  Transmission Date: 20150821
  Serious: Yes (Other)
  Sender: FDA-Public Use
  Company Number: GB-TEVA-558059ACC

PATIENT
  Age: 41 Year
  Sex: Female
  Weight: 133 kg

DRUGS (8)
  1. ERYTHROMYCIN. [Concomitant]
     Active Substance: ERYTHROMYCIN
     Dosage: APPLY TO THE AFFECTED AREA(S) TWICE A DAY
     Dates: start: 20150202
  2. PREDNISOLONE. [Concomitant]
     Active Substance: PREDNISOLONE
     Dosage: 6 DOSAGE FORMS DAILY; IN THE MORNING AFTER FOOD
     Dates: start: 20150412, end: 20150414
  3. CERAZETTE [Concomitant]
     Active Substance: DESOGESTREL
     Dosage: 1 DOSAGE FORMS DAILY;
     Dates: start: 20150128
  4. METHOCARBAMOL. [Concomitant]
     Active Substance: METHOCARBAMOL
     Dosage: 8 DOSAGE FORMS DAILY;
     Dates: start: 20150407
  5. AMOXICILLIN. [Concomitant]
     Active Substance: AMOXICILLIN
     Dosage: 3 DOSAGE FORMS DAILY;
     Dates: start: 20150412
  6. TRIMETHOPRIM. [Concomitant]
     Active Substance: TRIMETHOPRIM
     Dosage: 2 DOSAGE FORMS DAILY;
     Dates: start: 20150409
  7. NAPROXEN. [Suspect]
     Active Substance: NAPROXEN
     Dates: start: 20150412
  8. SALBUTAMOL [Concomitant]
     Active Substance: ALBUTEROL
     Route: 055
     Dates: start: 20150412

REACTIONS (1)
  - Wheezing [Recovered/Resolved]

NARRATIVE: CASE EVENT DATE: 20150412
